FAERS Safety Report 23870783 (Version 1)
Quarter: 2024Q2

REPORT INFORMATION
  Report Type: Spontaneous
  Country: JP (occurrence: JP)
  Receive Date: 20240518
  Receipt Date: 20240518
  Transmission Date: 20240716
  Serious: Yes (Death)
  Sender: FDA-Public Use
  Company Number: JP-ABBVIE-5764537

PATIENT

DRUGS (2)
  1. HUMIRA [Suspect]
     Active Substance: ADALIMUMAB
     Indication: Psoriatic arthropathy
     Dosage: INTERRUPTED FOR 3 MONTHS
     Route: 058
  2. HUMIRA [Suspect]
     Active Substance: ADALIMUMAB
     Dosage: DURATION TEXT: ABOUT 1 MONTH
     Route: 058

REACTIONS (2)
  - Sudden cardiac death [Fatal]
  - Psoriatic arthropathy [Unknown]
